FAERS Safety Report 18490242 (Version 3)
Quarter: 2021Q2

REPORT INFORMATION
  Report Type: Report from Study
  Country: CN (occurrence: CN)
  Receive Date: 20201111
  Receipt Date: 20210614
  Transmission Date: 20210717
  Serious: Yes (Other)
  Sender: FDA-Public Use
  Company Number: CN-ASTELLAS-2020US037863

PATIENT
  Age: 65 Year
  Sex: Male
  Weight: 64 kg

DRUGS (7)
  1. GOSERELIN ACETATE [Concomitant]
     Active Substance: GOSERELIN ACETATE
     Indication: PROSTATE CANCER METASTATIC
     Dosage: 3.6 MG, MONTHLY IH (SUSTAINED RELEASE IMPLANTS)
     Route: 065
     Dates: start: 20200807, end: 20200904
  2. ENZALUTAMIDE [Suspect]
     Active Substance: ENZALUTAMIDE
     Dosage: UNK UNK, ONCE DAILY
     Route: 048
     Dates: end: 20201023
  3. ENZALUTAMIDE [Suspect]
     Active Substance: ENZALUTAMIDE
     Dosage: UNK UNK, ONCE DAILY
     Route: 048
     Dates: start: 20201104
  4. NIFEDIPINE. [Concomitant]
     Active Substance: NIFEDIPINE
     Indication: HYPERTENSION
     Dosage: 10 MG, ONCE DAILY (SUSTAINED RELEASE TABLET)
     Route: 048
     Dates: start: 2014
  5. TRIPTORELIN [Concomitant]
     Active Substance: TRIPTORELIN
     Indication: PROSTATE CANCER METASTATIC
     Dosage: 3.75 MG, MONTHLY (IH)
     Route: 065
     Dates: start: 20200924, end: 20200924
  6. ENZALUTAMIDE [Suspect]
     Active Substance: ENZALUTAMIDE
     Indication: PROSTATE CANCER METASTATIC
     Dosage: UNK UNK, ONCE DAILY
     Route: 048
     Dates: start: 20200828, end: 20200922
  7. GOSERELIN ACETATE [Concomitant]
     Active Substance: GOSERELIN ACETATE
     Dosage: 10.8 MG, ONCE EVERY 3 MONTHS (IH)
     Route: 065
     Dates: start: 20201023

REACTIONS (1)
  - Liver injury [Recovered/Resolved]

NARRATIVE: CASE EVENT DATE: 20201023
